FAERS Safety Report 4558536-9 (Version None)
Quarter: 2005Q1

REPORT INFORMATION
  Report Type: 
  Country: None (occurrence: None)
  Receive Date: 20050121
  Receipt Date: 20050111
  Transmission Date: 20050727
  Serious: Yes (Other)
  Sender: FDA-Public Use
  Company Number: PHBS2005US01089

PATIENT
  Age: 26 Year
  Sex: Male

DRUGS (5)
  1. IMIPRAMINE HCL [Suspect]
     Dosage: 25 MG, BID
     Route: 065
  2. IMIPRAMINE HCL [Suspect]
     Dosage: 25 MG/D
     Route: 065
  3. LAMOTRIGINE [Concomitant]
     Indication: MYOCLONIC EPILEPSY
     Route: 065
  4. CLONAZEPAM [Concomitant]
     Indication: MYOCLONIC EPILEPSY
     Route: 065
  5. PAROXETINE HCL [Suspect]
     Dosage: 10 MG, BID
     Route: 065

REACTIONS (8)
  - ANXIETY [None]
  - CRYING [None]
  - DEPRESSED MOOD [None]
  - DYSPHORIA [None]
  - EUPHORIC MOOD [None]
  - HYPOKINESIA [None]
  - IRRITABILITY [None]
  - MYOCLONUS [None]
